FAERS Safety Report 16465240 (Version 1)
Quarter: 2019Q2

REPORT INFORMATION
  Report Type: Report from Study
  Country: US (occurrence: US)
  Receive Date: 20190621
  Receipt Date: 20190621
  Transmission Date: 20190711
  Serious: Yes (Other)
  Sender: FDA-Public Use
  Company Number: US-MALLINCKRODT-T201903609

PATIENT
  Age: 68 Year
  Sex: Male
  Weight: 124 kg

DRUGS (2)
  1. NORCO [Suspect]
     Active Substance: ACETAMINOPHEN\HYDROCODONE BITARTRATE
     Indication: PAIN
     Dosage: UNK
     Route: 065
  2. REPOSITORY CORTICOTROPIN INJECTION [Suspect]
     Active Substance: CORTICOTROPIN
     Indication: SARCOIDOSIS
     Dosage: 80 UNITS / 1 ML, 2 TIMES PER WEEK (WEDNESDAY/SATURDAY)
     Route: 058
     Dates: start: 20150803

REACTIONS (9)
  - Peripheral swelling [Unknown]
  - Weight decreased [Unknown]
  - Lymphadenopathy [Unknown]
  - Pain [Unknown]
  - Constipation [Unknown]
  - Abdominal distension [Not Recovered/Not Resolved]
  - Swelling face [Unknown]
  - Arthritis [Unknown]
  - Scrotal oedema [Not Recovered/Not Resolved]

NARRATIVE: CASE EVENT DATE: 20190505
